FAERS Safety Report 22265897 (Version 1)
Quarter: 2023Q2

REPORT INFORMATION
  Report Type: Spontaneous
  Country: US (occurrence: US)
  Receive Date: 20230428
  Receipt Date: 20230428
  Transmission Date: 20230721
  Serious: Yes (Other)
  Sender: FDA-Public Use
  Company Number: US-ViiV Healthcare Limited-US2023AMR058486

PATIENT

DRUGS (2)
  1. DOVATO [Interacting]
     Active Substance: DOLUTEGRAVIR SODIUM\LAMIVUDINE
     Indication: HIV infection
     Dosage: UNK
     Dates: start: 202202, end: 2023
  2. BIKTARVY [Interacting]
     Active Substance: BICTEGRAVIR SODIUM\EMTRICITABINE\TENOFOVIR ALAFENAMIDE FUMARATE
     Indication: HIV infection
     Dosage: UNK
     Dates: end: 202202

REACTIONS (5)
  - Pathogen resistance [Unknown]
  - Viral load increased [Unknown]
  - Viral mutation identified [Unknown]
  - Adverse drug reaction [Unknown]
  - Drug interaction [Unknown]
